FAERS Safety Report 7289593-7 (Version None)
Quarter: 2011Q1

REPORT INFORMATION
  Report Type: 
  Country: None (occurrence: None)
  Receive Date: 20110214
  Receipt Date: 20110204
  Transmission Date: 20110831
  Serious: Yes (Other)
  Sender: FDA-Public Use
  Company Number: US-SOLVAY-00211000955

PATIENT
  Age: 33 Year
  Sex: Male
  Weight: 84.09 kg

DRUGS (3)
  1. ANDROGEL [Suspect]
     Dosage: DAILY DOSE:  UNKNOWN
     Route: 062
  2. M.V.I. [Concomitant]
     Indication: PRODUCT USED FOR UNKNOWN INDICATION
     Dosage: DAILY DOSE:  UNKNOWN
     Route: 065
  3. ANDROGEL [Suspect]
     Indication: PRODUCT USED FOR UNKNOWN INDICATION
     Dosage: DAILY DOSE:  UNKNOWN
     Route: 062
     Dates: start: 20050101, end: 20050101

REACTIONS (2)
  - DRY SKIN [None]
  - TESTIS CANCER [None]
